FAERS Safety Report 7687188-4 (Version None)
Quarter: 2011Q3

REPORT INFORMATION
  Report Type: 
  Country: None (occurrence: None)
  Receive Date: 20110816
  Receipt Date: 20110811
  Transmission Date: 20111222
  Serious: Yes (Other)
  Sender: FDA-Public Use
  Company Number: CHPA2011US10747

PATIENT
  Age: 53 Year
  Sex: Female

DRUGS (5)
  1. VOLTAREN [Concomitant]
     Indication: PAIN
     Dosage: UNK, UNK
     Route: 061
  2. NORCO [Concomitant]
     Dosage: UNK, UNK
     Route: 048
  3. EXCEDRIN (MIGRAINE) [Suspect]
     Dosage: 4 DF, QD
     Route: 048
  4. EXCEDRIN (MIGRAINE) [Suspect]
     Indication: MIGRAINE
     Dosage: 2 DF, PRN
     Route: 048
  5. VALIUM [Concomitant]
     Dosage: UNK, UNK
     Route: 048

REACTIONS (5)
  - CHEST DISCOMFORT [None]
  - CARDIAC DISORDER [None]
  - OVERDOSE [None]
  - DYSPNOEA [None]
  - HEPATITIS [None]
